FAERS Safety Report 22294105 (Version 1)
Quarter: 2023Q2

REPORT INFORMATION
  Report Type: Spontaneous
  Country: US (occurrence: US)
  Receive Date: 20230508
  Receipt Date: 20230508
  Transmission Date: 20230721
  Serious: Yes (Other)
  Sender: FDA-Public Use
  Company Number: US-AMRING PHARMACEUTICALS INC.-2023US001610

PATIENT
  Age: 48 Year
  Sex: Female

DRUGS (4)
  1. SUCCINYLCHOLINE [Suspect]
     Active Substance: SUCCINYLCHOLINE
     Indication: Anaesthesia
     Dosage: 1 MG/KG  IBW
     Route: 042
  2. SUCCINYLCHOLINE [Suspect]
     Active Substance: SUCCINYLCHOLINE
     Dosage: 0.5 MG/KG TBW
     Route: 042
  3. METHOHEXITAL [Suspect]
     Active Substance: METHOHEXITAL
     Indication: Anaesthesia
     Dosage: 90 MG
     Route: 042
  4. KETAMINE [Suspect]
     Active Substance: KETAMINE
     Indication: Anaesthesia
     Dosage: UNK
     Route: 042

REACTIONS (1)
  - Hypoxia [Recovered/Resolved]
